FAERS Safety Report 16569593 (Version 2)
Quarter: 2019Q3

REPORT INFORMATION
  Report Type: Spontaneous
  Country: JP (occurrence: JP)
  Receive Date: 20190715
  Receipt Date: 20190807
  Transmission Date: 20191004
  Serious: Yes (Other)
  Sender: FDA-Public Use
  Company Number: JP-AMGEN-JPNSP2016131504

PATIENT
  Age: 15 Year
  Sex: Female
  Weight: 50 kg

DRUGS (20)
  1. REBAMIPIDE [Concomitant]
     Active Substance: REBAMIPIDE
     Indication: GASTROINTESTINAL DISORDER PROPHYLAXIS
     Dosage: 100 MG, AS NEEDED
     Route: 048
     Dates: start: 20160914
  2. PROSTANDIN [Concomitant]
     Indication: WOUND TREATMENT
     Dosage: 120 MICROGRAM, QD
     Route: 042
     Dates: start: 20160917, end: 20160921
  3. FENTANYL. [Concomitant]
     Active Substance: FENTANYL
     Indication: ANAESTHESIA PROCEDURE
     Dosage: 1 MILLIGRAM, QD
     Route: 042
     Dates: start: 20160906, end: 20160916
  4. OMEPRAZOLE. [Concomitant]
     Active Substance: OMEPRAZOLE
     Indication: GASTROINTESTINAL DISORDER PROPHYLAXIS
     Dosage: 20 MILLIGRAM, QD
     Route: 042
     Dates: start: 20160916
  5. BFLUID [Concomitant]
     Active Substance: AMINO ACIDS\DEXTROSE\ELECTROLYTES NOS\VITAMINS
     Indication: NUTRITIONAL SUPPLEMENTATION
     Dosage: 2DF/DAY
     Route: 042
     Dates: start: 20160915
  6. SOLETON [Concomitant]
     Active Substance: ZALTOPROFEN
     Indication: PAIN
     Dosage: 80 MG, TID
     Route: 048
     Dates: start: 20160920
  7. FENTANYL. [Concomitant]
     Active Substance: FENTANYL
     Dosage: 0.75 MILLIGRAM, QD
     Route: 042
     Dates: start: 20160906, end: 20160906
  8. TRANEXAMIC ACID. [Concomitant]
     Active Substance: TRANEXAMIC ACID
     Indication: HAEMORRHAGE PROPHYLAXIS
     Dosage: 1000 MG, BID
     Route: 042
     Dates: start: 20160916, end: 20160916
  9. POTACOL R [Concomitant]
     Active Substance: CALCIUM CHLORIDE\MALTOSE\POTASSIUM CHLORIDE\SODIUM CHLORIDE\SODIUM LACTATE
     Indication: NUTRITIONAL SUPPLEMENTATION
     Dosage: 1DF/DAY
     Route: 042
     Dates: start: 20160916, end: 20160917
  10. DENOTAS [Concomitant]
     Active Substance: CALCIUM CARBONATE\CHOLECALCIFEROL\MAGNESIUM CARBONATE
     Dosage: UNK
     Dates: start: 20160907
  11. LOXOPROFEN NA [Concomitant]
     Active Substance: LOXOPROFEN SODIUM
     Indication: PAIN
     Dosage: 60 MG, AS NEEDED
     Route: 048
     Dates: start: 20160914
  12. ACETAMINOPHEN. [Concomitant]
     Active Substance: ACETAMINOPHEN
     Indication: PAIN
     Dosage: 200 MG, AS NEEDED
     Route: 054
     Dates: start: 20160906
  13. CEFAZOLIN NA [Concomitant]
     Active Substance: CEFAZOLIN SODIUM
     Indication: INFECTION PROPHYLAXIS
     Dosage: 1 G, TID
     Route: 042
     Dates: start: 20160916
  14. NEUROTROPIN [Concomitant]
     Active Substance: NEUROTROPIN
     Indication: PAIN
     Dosage: 1 DOSAGE FORM, QD
     Route: 042
     Dates: start: 20160917, end: 20160921
  15. SOLYUGEN F [Concomitant]
     Active Substance: CALCIUM CHLORIDE\POTASSIUM CHLORIDE\SODIUM ACETATE\SODIUM CHLORIDE
     Indication: NUTRITIONAL SUPPLEMENTATION
     Dosage: 1DF/DAY
     Route: 042
     Dates: start: 20160916, end: 20160917
  16. SOLYUGEN F [Concomitant]
     Active Substance: CALCIUM CHLORIDE\POTASSIUM CHLORIDE\SODIUM ACETATE\SODIUM CHLORIDE
     Dosage: UNK
     Route: 041
     Dates: start: 20160917, end: 20160918
  17. RANMARK [Suspect]
     Active Substance: DENOSUMAB
     Indication: BONE GIANT CELL TUMOUR
     Dosage: 120 MILLIGRAM, SINGLE
     Route: 058
     Dates: start: 20160907, end: 20160907
  18. ULTIVA [Concomitant]
     Active Substance: REMIFENTANIL HYDROCHLORIDE
     Indication: ANAESTHESIA PROCEDURE
     Dosage: 10 MG, QD
     Route: 042
     Dates: start: 20160906, end: 20160906
  19. STRONGER NEO-MINOPHAGEN C [Concomitant]
     Active Substance: AMMONIUM GLYCYRRHIZATE\CYSTEINE HYDROCHLORIDE\GLYCINE
     Indication: WOUND TREATMENT
     Dosage: 1DF/DAY
     Route: 042
     Dates: start: 20160917, end: 20160921
  20. SOLYUGEN F [Concomitant]
     Active Substance: CALCIUM CHLORIDE\POTASSIUM CHLORIDE\SODIUM ACETATE\SODIUM CHLORIDE
     Indication: PRODUCT USED FOR UNKNOWN INDICATION
     Dosage: 1DF/DAY
     Route: 042
     Dates: start: 20160914

REACTIONS (7)
  - Dysstasia [Recovered/Resolved]
  - Back pain [Recovered/Resolved]
  - Hypocalcaemia [Recovered/Resolved]
  - Spinal compression fracture [Recovered/Resolved]
  - Muscle spasms [Recovered/Resolved]
  - Tetany [Recovered/Resolved]
  - Pathological fracture [Recovered/Resolved]

NARRATIVE: CASE EVENT DATE: 20160916
